FAERS Safety Report 9331959 (Version 1)
Quarter: 2013Q2

REPORT INFORMATION
  Report Type: Spontaneous
  Country: US (occurrence: None)
  Receive Date: 20130603
  Receipt Date: 20130603
  Transmission Date: 20140414
  Serious: Yes (Hospitalization)
  Sender: FDA-Public Use
  Company Number: SYM-2013-04097

PATIENT
  Age: 69 Year
  Sex: Female

DRUGS (20)
  1. DILTIAZEM HYDROCHLORIDE [Suspect]
     Indication: PRODUCT USED FOR UNKNOWN INDICATION
  2. LORAZEPAM (LORAZEPAM) [Suspect]
  3. METOPROLOL TARTRATE [Suspect]
  4. OMEPRAZOLE (OMEPRAZOLE) [Suspect]
  5. GLIMEPIRIDE (GLIMEPIRIDE) [Suspect]
  6. ASPIRIN (ACETYLSALICYLIC ACID) [Suspect]
  7. DIGOXIN (DIGOXIN) [Suspect]
  8. LISINOPRIL (LISINOPRIL) [Suspect]
  9. FUROSEMIDE (FUROSEMIDE) [Suspect]
  10. POTASSIUM CHLORIDE (POTASSIUM CHLORIDE) [Suspect]
  11. METFORMIN HYDROCHLORIDE (METFORMIN HYDROCHLORIDE) [Suspect]
  12. LEVOTHYROXINE SODIUM [Suspect]
  13. GEMFIBROZIL [Suspect]
  14. FISH OIL (FISH OIL) [Suspect]
  15. ALBUTEROL (SALBUTAMOL) [Suspect]
  16. DULOXETINE HYDROCHLORIDE [Suspect]
  17. CELECOXIB (CELECOXIB) [Suspect]
  18. VITAMIN A AND D [Suspect]
  19. DABIGATRAN (DABIGATRAN) (DABIGA TRAN) [Suspect]
     Route: 048
     Dates: start: 2007
  20. INSULIN (INSULIN) [Suspect]

REACTIONS (3)
  - Dyspnoea exertional [None]
  - Dyspnoea [None]
  - Musculoskeletal chest pain [None]
